FAERS Safety Report 7568624-0 (Version None)
Quarter: 2011Q2

REPORT INFORMATION
  Report Type: 
  Country: None (occurrence: None)
  Receive Date: 20110623
  Receipt Date: 20110610
  Transmission Date: 20111010
  Serious: Yes (Hospitalization)
  Sender: FDA-Public Use
  Company Number: PHHY2011US51280

PATIENT
  Age: 40 Year
  Sex: Female

DRUGS (8)
  1. METRONIDAZOLE [Suspect]
  2. TOBRAMYCIN [Suspect]
  3. PROPRANOLOL [Suspect]
  4. IBUPROFEN [Suspect]
  5. METHIMAZOLE [Suspect]
     Indication: BASEDOW'S DISEASE
     Dosage: 30 MG, DAILY
  6. CEFEPIME [Suspect]
  7. VANCOMYCIN [Suspect]
     Route: 048
  8. HYDROCORTISONE [Suspect]

REACTIONS (19)
  - CHILLS [None]
  - CLOSTRIDIUM DIFFICILE COLITIS [None]
  - DRUG INEFFECTIVE [None]
  - ARTERIOSPASM CORONARY [None]
  - PERICARDITIS [None]
  - TENDERNESS [None]
  - ALTERED STATE OF CONSCIOUSNESS [None]
  - ELECTROCARDIOGRAM ST SEGMENT ELEVATION [None]
  - HYPOTHYROIDISM [None]
  - CHEST PAIN [None]
  - ELECTROCARDIOGRAM ABNORMAL [None]
  - PAIN [None]
  - THYROTOXIC CRISIS [None]
  - AGRANULOCYTOSIS [None]
  - NECK PAIN [None]
  - THROMBOCYTOPENIA [None]
  - SINUS TACHYCARDIA [None]
  - PYREXIA [None]
  - OROPHARYNGEAL PAIN [None]
